FAERS Safety Report 17348929 (Version 1)
Quarter: 2020Q1

REPORT INFORMATION
  Report Type: Spontaneous
  Country: US (occurrence: US)
  Receive Date: 20200129
  Receipt Date: 20200129
  Transmission Date: 20200409
  Serious: Yes (Hospitalization)
  Sender: FDA-Public Use
  Company Number: None

PATIENT
  Age: 27 Year
  Sex: Male
  Weight: 95.2 kg

DRUGS (1)
  1. HUMIRA [Suspect]
     Active Substance: ADALIMUMAB
     Indication: HIDRADENITIS
     Dosage: ?          OTHER FREQUENCY:WEEKLY;?
     Route: 058
     Dates: start: 20191218, end: 20200114

REACTIONS (6)
  - Splenomegaly [None]
  - Adverse drug reaction [None]
  - Lymphadenopathy [None]
  - Polyarthritis [None]
  - Lupus-like syndrome [None]
  - Pancytopenia [None]

NARRATIVE: CASE EVENT DATE: 20200114
